FAERS Safety Report 4555785-0 (Version None)
Quarter: 2005Q1

REPORT INFORMATION
  Report Type: 
  Country: None (occurrence: None)
  Receive Date: 20050118
  Receipt Date: 20041014
  Transmission Date: 20050727
  Serious: No
  Sender: FDA-Public Use
  Company Number: A03200403465

PATIENT
  Age: 73 Year
  Sex: Male

DRUGS (5)
  1. UROXATRAL [Suspect]
     Indication: BENIGN PROSTATIC HYPERPLASIA
     Dosage: 10 MG OD ORAL
     Route: 048
     Dates: start: 20041007, end: 20041008
  2. DILTIAZEM HYDROCHLORIDE [Concomitant]
  3. THEOPHYLLINE [Concomitant]
  4. BISOPROLOL AND HYDROCHLOROTHIAZIDE [Concomitant]
  5. OXYGEN [Concomitant]

REACTIONS (1)
  - DYSPNOEA [None]
